FAERS Safety Report 24306177 (Version 1)
Quarter: 2024Q3

REPORT INFORMATION
  Report Type: Spontaneous
  Country: PL (occurrence: PL)
  Receive Date: 20240911
  Receipt Date: 20240911
  Transmission Date: 20241016
  Serious: Yes (Hospitalization, Other)
  Sender: GILEAD
  Company Number: PL-GILEAD-2024-0686237

PATIENT
  Age: 62 Year
  Sex: Male

DRUGS (1)
  1. GENVOYA [Suspect]
     Active Substance: COBICISTAT\ELVITEGRAVIR\EMTRICITABINE\TENOFOVIR ALAFENAMIDE FUMARATE
     Indication: HIV infection
     Dosage: UNK
     Route: 065

REACTIONS (10)
  - Balance disorder [Recovering/Resolving]
  - Dizziness [Recovering/Resolving]
  - Rash macular [Unknown]
  - Hallucinations, mixed [Recovering/Resolving]
  - Delusional disorder, unspecified type [Recovering/Resolving]
  - Arthralgia [Unknown]
  - Colitis [Recovering/Resolving]
  - Ulcer [Recovering/Resolving]
  - Chlamydial infection [Recovering/Resolving]
  - Paranoia [Recovering/Resolving]

NARRATIVE: CASE EVENT DATE: 20191201
